FAERS Safety Report 7006645-7 (Version None)
Quarter: 2010Q3

REPORT INFORMATION
  Report Type: 
  Country: None (occurrence: None)
  Receive Date: 20100921
  Receipt Date: 20100921
  Transmission Date: 20110219
  Serious: Yes (Other)
  Sender: FDA-Public Use
  Company Number: None

PATIENT
  Age: 41 Year
  Sex: Male
  Weight: 108.8633 kg

DRUGS (1)
  1. APLENZIN [Suspect]
     Dosage: 348 MG DAILY PO
     Route: 048
     Dates: start: 20100907

REACTIONS (2)
  - MEDICATION RESIDUE [None]
  - NO THERAPEUTIC RESPONSE [None]
